FAERS Safety Report 4367181-X (Version None)
Quarter: 2004Q2

REPORT INFORMATION
  Report Type: 
  Country: None (occurrence: None)
  Receive Date: 20040528
  Receipt Date: 20040521
  Transmission Date: 20050107
  Serious: Yes (Hospitalization)
  Sender: FDA-Public Use
  Company Number: PHHO2004PL07312

PATIENT
  Age: 38 Year
  Sex: Male
  Weight: 87 kg

DRUGS (4)
  1. RAD [Suspect]
     Indication: RENAL TRANSPLANT
     Dosage: 1 MG, BID
     Route: 048
     Dates: start: 20020221
  2. NEORAL [Suspect]
     Indication: RENAL TRANSPLANT
     Dosage: 75 + 50 MG
     Route: 048
     Dates: start: 20020220
  3. PREDNISONE [Suspect]
     Indication: RENAL TRANSPLANT
     Dosage: 7.5 MG, QD
     Route: 048
     Dates: start: 20020221
  4. GLIMEPIRIDE [Concomitant]

REACTIONS (4)
  - CONCOMITANT DISEASE PROGRESSION [None]
  - DIABETES MELLITUS [None]
  - DIABETES MELLITUS INADEQUATE CONTROL [None]
  - POST PROCEDURAL COMPLICATION [None]
